FAERS Safety Report 10424640 (Version 5)
Quarter: 2014Q4

REPORT INFORMATION
  Report Type: Spontaneous
  Country: JP (occurrence: JP)
  Receive Date: 20140902
  Receipt Date: 20141119
  Transmission Date: 20150528
  Serious: Yes (Other)
  Sender: FDA-Public Use
  Company Number: JP-PFIZER INC-2014242947

PATIENT
  Age: 50 Year
  Sex: Female
  Weight: 52 kg

DRUGS (6)
  1. LYRICA [Suspect]
     Active Substance: PREGABALIN
     Dosage: 25 MG 3X/DAY (MORNING, EVENING AND BEFORE BEDTIME)
     Route: 048
     Dates: start: 20140730, end: 20140821
  2. LYRICA [Suspect]
     Active Substance: PREGABALIN
     Indication: NEURALGIA
     Dosage: 25 MG 1X/DAY BEFORE BEDTIME
     Route: 048
     Dates: start: 20130912, end: 20140729
  3. RINLAXER [Concomitant]
     Active Substance: CHLORPHENESIN CARBAMATE
     Indication: HYPOTONIA
     Dosage: UNK, 2X/DAY
     Route: 048
     Dates: start: 20100720
  4. KASHIWADOL [Concomitant]
     Active Substance: SODIUM CHONDROITIN SULFATE
     Dosage: 20 ML, UNK
     Route: 042
  5. LYRICA [Suspect]
     Active Substance: PREGABALIN
     Dosage: 25 MG 1X/DAY (BEFORE BEDTIME)
     Route: 048
     Dates: start: 20140911
  6. TALION [Concomitant]
     Active Substance: BEPOTASTINE
     Indication: SEASONAL ALLERGY
     Dosage: UNK
     Route: 048

REACTIONS (4)
  - Loss of consciousness [Recovered/Resolved]
  - Injury [Recovered/Resolved]
  - Somnolence [Recovered/Resolved]
  - Road traffic accident [Recovered/Resolved]

NARRATIVE: CASE EVENT DATE: 20140821
